FAERS Safety Report 23292395 (Version 1)
Quarter: 2023Q4

REPORT INFORMATION
  Report Type: Spontaneous
  Country: None (occurrence: US)
  Receive Date: 20231213
  Receipt Date: 20231213
  Transmission Date: 20240110
  Serious: Yes (Other)
  Sender: FDA-Public Use
  Company Number: US-The Proactiv LLC-2149268

PATIENT
  Age: 43 Year
  Sex: Female

DRUGS (5)
  1. PROACTIVPLUS SKIN SMOOTHING EXFOLIATOR [Suspect]
     Active Substance: BENZOYL PEROXIDE
     Route: 061
  2. PROACTIV PLUS COMPLEXION PERFECTING HYDRATOR [Suspect]
     Active Substance: SALICYLIC ACID
     Route: 061
  3. PROACTIV PLUS PORE TARGETING TREATMENT [Suspect]
     Active Substance: BENZOYL PEROXIDE
     Route: 061
  4. COSMETICS [Suspect]
     Active Substance: COSMETICS
     Route: 061
  5. COSMETICS [Suspect]
     Active Substance: COSMETICS
     Route: 061

REACTIONS (1)
  - Neoplasm malignant [Unknown]
